FAERS Safety Report 9296781 (Version 1)
Quarter: 2013Q2

REPORT INFORMATION
  Report Type: Spontaneous
  Country: DK (occurrence: CH)
  Receive Date: 20130517
  Receipt Date: 20130517
  Transmission Date: 20140414
  Serious: Yes (Death)
  Sender: FDA-Public Use
  Company Number: CH-FRI-1000045207

PATIENT
  Sex: Male

DRUGS (9)
  1. ESCITALOPRAM [Suspect]
     Dosage: 10 MG
     Route: 048
  2. SEROQUEL [Suspect]
     Dosage: 400 MG
     Route: 048
  3. RITALINE [Concomitant]
     Dosage: 20 MG
     Route: 048
  4. ZYPREXA [Concomitant]
     Dosage: 10 MG
     Route: 048
  5. TEMESTA [Concomitant]
     Dosage: 3 MG
     Route: 048
     Dates: start: 20121113
  6. NICOTINELL [Concomitant]
     Dosage: 14 MG
     Route: 050
  7. IRFEN [Concomitant]
     Dosage: 120 MG
     Route: 048
     Dates: start: 20121027
  8. PRAZINE [Concomitant]
     Dosage: 200 MG
     Dates: start: 201212
  9. DAFALGAN [Concomitant]
     Dosage: 4000 MG
     Route: 048

REACTIONS (1)
  - Sudden death [Fatal]
